FAERS Safety Report 24743773 (Version 1)
Quarter: 2024Q4

REPORT INFORMATION
  Report Type: Spontaneous
  Country: GB (occurrence: GB)
  Receive Date: 20241217
  Receipt Date: 20241217
  Transmission Date: 20250114
  Serious: Yes (Other)
  Sender: RANBAXY
  Company Number: GB-MHRA-TPP12395159C3208517YC1732905848460

PATIENT
  Age: 63 Year
  Sex: Male
  Weight: 79 kg

DRUGS (10)
  1. TETRABENAZINE [Suspect]
     Active Substance: TETRABENAZINE
     Indication: Ill-defined disorder
     Dosage: 25 MILLIGRAM, TID
     Route: 065
     Dates: start: 20240412, end: 20241126
  2. FINASTERIDE [Concomitant]
     Active Substance: FINASTERIDE
     Indication: Ill-defined disorder
     Dosage: 1 DOSAGE FORM, DAILY
     Route: 065
     Dates: start: 20241126
  3. ALFUZOSIN [Concomitant]
     Active Substance: ALFUZOSIN
     Indication: Ill-defined disorder
     Dosage: 1 DOSAGE FORM, DAILY
     Route: 065
     Dates: start: 20240412
  4. ASSICCO [Concomitant]
     Indication: Ill-defined disorder
     Dosage: 1 DOSAGE FORM, BID
     Route: 065
     Dates: start: 20240412
  5. ATORVASTATIN [Concomitant]
     Active Substance: ATORVASTATIN
     Indication: Ill-defined disorder
     Dosage: 1 DOSAGE FORM, DAILY
     Route: 065
     Dates: start: 20240412
  6. ATROPINE [Concomitant]
     Active Substance: ATROPINE
     Indication: Ill-defined disorder
     Dosage: ONE DROP UP TO SIX TIMES DAILY TO THE MOUTH AS ...
     Route: 065
     Dates: start: 20240412
  7. CLOPIDOGREL [Concomitant]
     Active Substance: CLOPIDOGREL BISULFATE
     Indication: Ill-defined disorder
     Dosage: 1 DOSAGE FORM, DAILY
     Route: 065
     Dates: start: 20240412
  8. COLGATE DURAPHAT [Concomitant]
     Active Substance: SODIUM FLUORIDE
     Indication: Ill-defined disorder
     Dosage: PEA SIZED AMOUNT
     Route: 065
     Dates: start: 20240412
  9. LANSOPRAZOLE [Concomitant]
     Active Substance: LANSOPRAZOLE
     Indication: Ill-defined disorder
     Dosage: 30 MINUTES BEFORE FOOD
     Route: 065
     Dates: start: 20240412
  10. SYMBICORT [Concomitant]
     Active Substance: BUDESONIDE\FORMOTEROL FUMARATE DIHYDRATE
     Indication: Ill-defined disorder
     Dosage: 2 DOSAGE FORM, BID
     Route: 065
     Dates: start: 20240412

REACTIONS (3)
  - Muscular weakness [Recovering/Resolving]
  - Coordination abnormal [Recovering/Resolving]
  - Anaesthesia oral [Recovering/Resolving]
